FAERS Safety Report 6733872-6 (Version None)
Quarter: 2010Q2

REPORT INFORMATION
  Report Type: 
  Country: None (occurrence: None)
  Receive Date: 20100520
  Receipt Date: 20100514
  Transmission Date: 20101027
  Serious: Yes (Life-Threatening)
  Sender: FDA-Public Use
  Company Number: JP-ROCHE-687550

PATIENT
  Sex: Female

DRUGS (1)
  1. TAMIFLU [Suspect]
     Indication: INFLUENZA
     Dosage: INTAKE FOR 2-DAYS
     Route: 048
     Dates: start: 20091202, end: 20091203

REACTIONS (1)
  - HEART DISEASE CONGENITAL [None]
